FAERS Safety Report 10210145 (Version 2)
Quarter: 2014Q3

REPORT INFORMATION
  Report Type: Spontaneous
  Country: US (occurrence: US)
  Receive Date: 20140602
  Receipt Date: 20140701
  Transmission Date: 20150326
  Serious: Yes (Death, Hospitalization, Other)
  Sender: FDA-Public Use
  Company Number: US-AMGEN-USASP2014039630

PATIENT
  Age: 87 Year
  Sex: Male
  Weight: 162.4 kg

DRUGS (1)
  1. XGEVA [Suspect]
     Active Substance: DENOSUMAB
     Indication: PRODUCT USED FOR UNKNOWN INDICATION
     Dosage: 120 MG, QMO
     Route: 058
     Dates: start: 20130828

REACTIONS (6)
  - Non-Hodgkin^s lymphoma [Fatal]
  - Prostate cancer metastatic [Fatal]
  - Abdominal pain [Fatal]
  - Intestinal mass [Unknown]
  - Fibrosis [Unknown]
  - Large intestine perforation [Fatal]

NARRATIVE: CASE EVENT DATE: 20140214
